FAERS Safety Report 8094203-5 (Version None)
Quarter: 2012Q1

REPORT INFORMATION
  Report Type: 
  Country: None (occurrence: None)
  Receive Date: 20120125
  Receipt Date: 20120118
  Transmission Date: 20120608
  Serious: Yes (Hospitalization, Disabling)
  Sender: FDA-Public Use
  Company Number: NES-AE-12-002

PATIENT
  Age: 44 Year
  Sex: Male

DRUGS (25)
  1. AVANDIA [Concomitant]
  2. INDOMETHACIN [Concomitant]
  3. LISINOPRIL [Concomitant]
  4. METFORMIN HCL [Concomitant]
  5. FLEXERIL [Concomitant]
  6. ROPINIROLE [Concomitant]
  7. NEXIUM [Concomitant]
  8. ZYLOPRIM [Concomitant]
  9. MORPHINE SULFATE INJ [Suspect]
     Indication: PAIN MANAGEMENT
     Dosage: UNK - UNK - UNK
  10. NEURONTIN [Concomitant]
  11. VARENICLINE [Concomitant]
  12. COREG [Concomitant]
  13. PREVACID [Concomitant]
  14. ZANTAC [Concomitant]
  15. ACTOS [Concomitant]
  16. AMOXICILLIN AND CLAVULANATE POTASSIUM [Concomitant]
  17. PERCOCET [Suspect]
     Indication: PRODUCT USED FOR UNKNOWN INDICATION
  18. OXAZEPAM [Concomitant]
  19. TRAMADOL HCL [Concomitant]
  20. AMITRIPTYLINE HCL [Concomitant]
  21. LOVENOX [Concomitant]
  22. CIALIS [Concomitant]
  23. LIPITOR [Concomitant]
  24. GLIPIZIDE [Concomitant]
  25. DIAZEPAM [Concomitant]

REACTIONS (18)
  - MEMORY IMPAIRMENT [None]
  - ANXIETY [None]
  - FAMILY STRESS [None]
  - HYPERKALAEMIA [None]
  - PULMONARY EMBOLISM [None]
  - RHABDOMYOLYSIS [None]
  - APPARENT DEATH [None]
  - OVERDOSE [None]
  - RENAL FAILURE ACUTE [None]
  - DYSARTHRIA [None]
  - CONFUSIONAL STATE [None]
  - MENTAL STATUS CHANGES [None]
  - BACK PAIN [None]
  - UNRESPONSIVE TO STIMULI [None]
  - LETHARGY [None]
  - DISORIENTATION [None]
  - HYPONATRAEMIA [None]
  - DEFORMITY [None]
